FAERS Safety Report 6181599-4 (Version None)
Quarter: 2009Q2

REPORT INFORMATION
  Report Type: 
  Country: None (occurrence: None)
  Receive Date: 20090506
  Receipt Date: 20090429
  Transmission Date: 20091009
  Serious: Yes (Hospitalization, Congenital Anomaly)
  Sender: FDA-Public Use
  Company Number: A0747579A

PATIENT
  Sex: Male
  Weight: 3.4 kg

DRUGS (2)
  1. PAXIL [Suspect]
     Indication: DEPRESSION
     Dosage: 20MG TWICE PER DAY
     Dates: start: 20041001, end: 20041201
  2. VITAMIN AND MINERAL PRENATAL SUPPLEMENT W/ FOLIC ACID CAP [Concomitant]

REACTIONS (11)
  - ABDOMINAL WALL ANOMALY [None]
  - CARDIAC MURMUR [None]
  - CELLULITIS [None]
  - CONGENITAL ANOMALY [None]
  - CONGENITAL HYDRONEPHROSIS [None]
  - DRUG EXPOSURE DURING PREGNANCY [None]
  - GASTROSCHISIS [None]
  - JAUNDICE NEONATAL [None]
  - NEONATAL TACHYCARDIA [None]
  - POST PROCEDURAL INFECTION [None]
  - PULMONARY VALVE STENOSIS [None]
